FAERS Safety Report 17772613 (Version 4)
Quarter: 2020Q3

REPORT INFORMATION
  Report Type: Report from Study
  Country: US (occurrence: US)
  Receive Date: 20200512
  Receipt Date: 20200916
  Transmission Date: 20201102
  Serious: No
  Sender: FDA-Public Use
  Company Number: NVSC2020US128089

PATIENT
  Age: 50 Year
  Sex: Male

DRUGS (1)
  1. COSENTYX [Suspect]
     Active Substance: SECUKINUMAB
     Dosage: UNK
     Route: 065

REACTIONS (8)
  - Skin exfoliation [Unknown]
  - Rash erythematous [Unknown]
  - Acne [Unknown]
  - Psoriasis [Unknown]
  - Arthralgia [Unknown]
  - Drug ineffective [Unknown]
  - Skin plaque [Unknown]
  - Alopecia [Unknown]
